FAERS Safety Report 8594677-7 (Version None)
Quarter: 2012Q3

REPORT INFORMATION
  Report Type: 
  Country: None (occurrence: None)
  Receive Date: 20120815
  Receipt Date: 20120808
  Transmission Date: 20120928
  Serious: No
  Sender: FDA-Public Use
  Company Number: US-PFIZER INC-2012193859

PATIENT
  Sex: Female

DRUGS (1)
  1. SULFASALAZINE [Suspect]
     Indication: ARTHRITIS
     Dosage: 1000MG (TWO OF 500MG) IN THE MORNING AND 1500MG (THREE OF 500MG) AT NIGHT
     Route: 048
     Dates: start: 20120501, end: 20120101

REACTIONS (2)
  - PRODUCT ODOUR ABNORMAL [None]
  - DRUG INEFFECTIVE [None]
